FAERS Safety Report 24735244 (Version 1)
Quarter: 2024Q4

REPORT INFORMATION
  Report Type: Spontaneous
  Country: JP (occurrence: JP)
  Receive Date: 20241215
  Receipt Date: 20241215
  Transmission Date: 20250115
  Serious: Yes (Other)
  Sender: MERCK
  Company Number: JP-MSD-M2024-30176

PATIENT
  Sex: Female

DRUGS (2)
  1. KEYTRUDA [Suspect]
     Active Substance: PEMBROLIZUMAB
     Indication: Triple negative breast cancer
     Dosage: 200 MILLIGRAM, Q3W
     Route: 041
  2. PREDONINE [Suspect]
     Active Substance: PREDNISOLONE
     Indication: Immune-mediated hepatic disorder
     Dosage: UNK
     Route: 065

REACTIONS (2)
  - Immune-mediated hepatic disorder [Recovering/Resolving]
  - Cortisol decreased [Unknown]
